FAERS Safety Report 16840188 (Version 1)
Quarter: 2019Q3

REPORT INFORMATION
  Report Type: Spontaneous
  Country: US (occurrence: US)
  Receive Date: 20190923
  Receipt Date: 20190923
  Transmission Date: 20191005
  Serious: Yes (Other)
  Sender: FDA-Public Use
  Company Number: US-SA-2019SA262103

PATIENT
  Age: 17 Year
  Sex: Male

DRUGS (1)
  1. CEREZYME [Suspect]
     Active Substance: IMIGLUCERASE
     Dosage: UNK UNK, UNK
     Route: 065

REACTIONS (4)
  - Condition aggravated [Unknown]
  - Seizure [Unknown]
  - Learning disability [Unknown]
  - Nervous system disorder [Unknown]
